FAERS Safety Report 25487896 (Version 1)
Quarter: 2025Q2

REPORT INFORMATION
  Report Type: Spontaneous
  Country: US (occurrence: US)
  Receive Date: 20250627
  Receipt Date: 20250627
  Transmission Date: 20250717
  Serious: Yes (Death, Hospitalization, Other)
  Sender: MERCK SHARP & DOHME LLC
  Company Number: US-009507513-2298925

PATIENT
  Sex: Male

DRUGS (1)
  1. KEYTRUDA [Suspect]
     Active Substance: PEMBROLIZUMAB
     Indication: Metastatic malignant melanoma
     Route: 042
     Dates: start: 20240806, end: 20240806

REACTIONS (49)
  - Immune-mediated myocarditis [Fatal]
  - Left ventricular hypertrophy [Unknown]
  - Immune-mediated myasthenia gravis [Fatal]
  - Rhabdomyolysis [Unknown]
  - Sinus bradycardia [Unknown]
  - Atrioventricular block complete [Unknown]
  - Immune-mediated myositis [Fatal]
  - Left ventricular dysfunction [Unknown]
  - Mitral valve incompetence [Unknown]
  - Tricuspid valve incompetence [Unknown]
  - Right ventricular systolic pressure increased [Unknown]
  - Mitral valve calcification [Unknown]
  - Myocardial calcification [Unknown]
  - Acute myocardial infarction [Unknown]
  - Aspiration [Unknown]
  - Respiratory failure [Fatal]
  - Pneumonitis [Unknown]
  - Gastrooesophageal reflux disease [Unknown]
  - Prothrombin time abnormal [Unknown]
  - Pulmonary oedema [Unknown]
  - Peritonitis [Unknown]
  - Diverticulitis [Unknown]
  - Colitis [Unknown]
  - Blood beta-D-glucan positive [Unknown]
  - Renal tubular necrosis [Unknown]
  - Metabolic acidosis [Unknown]
  - Azotaemia [Unknown]
  - Trifascicular block [Unknown]
  - Oesophageal motility disorder [Unknown]
  - Ventricular extrasystoles [Unknown]
  - Immune-mediated hepatitis [Unknown]
  - Sepsis [Unknown]
  - Acute kidney injury [Unknown]
  - Hypotension [Unknown]
  - Hepatic steatosis [Unknown]
  - Renal cyst [Unknown]
  - Acute sinusitis [Unknown]
  - Ischaemic hepatitis [Unknown]
  - Atrioventricular block first degree [Unknown]
  - Physical deconditioning [Unknown]
  - Tachycardia [Unknown]
  - Red blood cell transfusion [Unknown]
  - Respiratory distress [Unknown]
  - Septic shock [Unknown]
  - Faecal volume increased [Unknown]
  - Pleural effusion [Unknown]
  - Atelectasis [Unknown]
  - Depressed level of consciousness [Unknown]
  - Areflexia [Unknown]

NARRATIVE: CASE EVENT DATE: 20240101
